FAERS Safety Report 9918199 (Version 4)
Quarter: 2017Q3

REPORT INFORMATION
  Report Type: Report from Study
  Country: DE (occurrence: DE)
  Receive Date: 20140223
  Receipt Date: 20170808
  Transmission Date: 20171128
  Serious: Yes (Death, Hospitalization)
  Sender: FDA-Public Use
  Company Number: DE-ROCHE-1351888

PATIENT
  Age: 78 Year
  Sex: Female

DRUGS (19)
  1. CYNT (GERMANY) [Concomitant]
  2. TOCILIZUMAB. [Suspect]
     Active Substance: TOCILIZUMAB
     Indication: RHEUMATOID ARTHRITIS
     Dosage: PATIENT ADMINISTERED DRUG ON 24/MAR/2009
     Route: 042
     Dates: start: 200903
  3. TOCILIZUMAB. [Suspect]
     Active Substance: TOCILIZUMAB
     Dosage: PATTIENT ADMINISTERED DRUG ON 06/JUL/2009, 08/OCT/2009, 15/APR/2010, 23/AUG/2010 AND 24/FEB/2011
     Route: 042
     Dates: end: 201106
  4. AZATHIOPRINE. [Suspect]
     Active Substance: AZATHIOPRINE
     Dosage: WEEKS
     Route: 065
  5. LEVOTHYROXIN [Concomitant]
     Active Substance: LEVOTHYROXINE
  6. AMITRIPTYLINE [Concomitant]
     Active Substance: AMITRIPTYLINE
  7. TOREM [Concomitant]
     Active Substance: TORSEMIDE
  8. AZATHIOPRINE. [Suspect]
     Active Substance: AZATHIOPRINE
     Indication: RHEUMATOID ARTHRITIS
     Route: 065
  9. CONCOR [Concomitant]
     Active Substance: BISOPROLOL FUMARATE
  10. DIGIMERCK [Concomitant]
     Active Substance: DIGITOXIN
  11. JODID [Concomitant]
     Active Substance: IODINE
  12. MARCUMAR [Concomitant]
     Active Substance: PHENPROCOUMON
  13. VALORON (GERMANY) [Concomitant]
     Active Substance: TILIDINE HYDROCHLORIDE
  14. AMLODIPIN [Concomitant]
     Active Substance: AMLODIPINE BESYLATE
  15. TOCILIZUMAB. [Suspect]
     Active Substance: TOCILIZUMAB
     Dosage: PATTIENT ADMINISTERED DRUG ON 27/FEB/2012, 10/SEP/2012 AND 04/MAR/2013
     Route: 042
     Dates: start: 201201
  16. PREDNISOLON [Concomitant]
     Active Substance: PREDNISOLONE
  17. CALCIVIT D [Concomitant]
  18. ACICLOVIR [Concomitant]
     Active Substance: ACYCLOVIR
  19. PANTOZOL [Concomitant]
     Active Substance: PANTOPRAZOLE SODIUM

REACTIONS (4)
  - Polyneuropathy [Unknown]
  - Pulmonary sepsis [Fatal]
  - Cardiogenic shock [Fatal]
  - Pneumonia respiratory syncytial viral [Recovered/Resolved]

NARRATIVE: CASE EVENT DATE: 20130130
